FAERS Safety Report 18674873 (Version 1)
Quarter: 2020Q4

REPORT INFORMATION
  Report Type: Spontaneous
  Country: US (occurrence: US)
  Receive Date: 20201224
  Receipt Date: 20201224
  Transmission Date: 20210114
  Serious: No
  Sender: FDA-Public Use
  Company Number: None

PATIENT
  Sex: Female

DRUGS (5)
  1. METHOTREXATE. [Concomitant]
     Active Substance: METHOTREXATE
  2. ZONISAMIDE. [Concomitant]
     Active Substance: ZONISAMIDE
  3. HUMIRA [Suspect]
     Active Substance: ADALIMUMAB
  4. APAP/CODEINE [Concomitant]
     Active Substance: ACETAMINOPHEN\CODEINE PHOSPHATE
  5. XELJANZ XR [Suspect]
     Active Substance: TOFACITINIB CITRATE
     Indication: RHEUMATOID ARTHRITIS
     Route: 048
     Dates: start: 20201102

REACTIONS (4)
  - Respiratory arrest [None]
  - Peripheral swelling [None]
  - Joint swelling [None]
  - Tooth fracture [None]
